FAERS Safety Report 10048376 (Version 1)
Quarter: 2014Q1

REPORT INFORMATION
  Report Type: Spontaneous
  Country: IT (occurrence: IT)
  Receive Date: 20140331
  Receipt Date: 20140331
  Transmission Date: 20141002
  Serious: Yes (Other)
  Sender: FDA-Public Use
  Company Number: IT-GLAXOSMITHKLINE-B0981313A

PATIENT
  Age: 63 Year
  Sex: Female

DRUGS (4)
  1. VOTRIENT [Suspect]
     Indication: METASTATIC RENAL CELL CARCINOMA
     Dosage: 800MG PER DAY
  2. OLMESARTAN [Concomitant]
     Indication: HYPERTENSION
     Dosage: 40MG PER DAY
  3. AMLODIPINE [Concomitant]
     Dosage: 20MG PER DAY
  4. LASIX [Concomitant]
     Dosage: 25MG PER DAY

REACTIONS (3)
  - Dizziness [Unknown]
  - Decreased appetite [Unknown]
  - Hypertension [Unknown]
